FAERS Safety Report 7554924-7 (Version None)
Quarter: 2011Q2

REPORT INFORMATION
  Report Type: 
  Country: None (occurrence: None)
  Receive Date: 20110617
  Receipt Date: 20110615
  Transmission Date: 20111010
  Serious: Yes (Hospitalization, Other)
  Sender: FDA-Public Use
  Company Number: US-ELI_LILLY_AND_COMPANY-US200812002413

PATIENT
  Sex: Female
  Weight: 75.283 kg

DRUGS (44)
  1. FLEXERIL [Concomitant]
     Dosage: UNK, UNKNOWN
  2. PLAVIX [Concomitant]
     Dosage: 75 MG, DAILY (1/D)
  3. LOPID [Concomitant]
     Dosage: 600 MG, 2/D
  4. VITAMIN D [Concomitant]
     Dosage: UNK, WEEKLY (1/W)
  5. HYDROMORPHONE HCL [Concomitant]
     Dosage: UNK, UNKNOWN
  6. BYETTA [Suspect]
     Dosage: 5 UG, DAILY (1/D)
     Dates: start: 20070326, end: 20080830
  7. IMITREX [Concomitant]
  8. AVANDIA [Concomitant]
     Dosage: UNK, UNKNOWN
     Dates: end: 20070101
  9. TOPROL-XL [Concomitant]
     Dosage: 100 MG, DAILY (1/D)
  10. METFORMIN HCL [Concomitant]
     Dosage: UNK, UNKNOWN
  11. PEXEVA [Concomitant]
     Dosage: 20 MG, UNKNOWN
  12. WELLBUTRIN XL [Concomitant]
     Dosage: 150 MG, UNKNOWN
  13. OTHER CHOLESTEROL AND TRIGLYCERIDE REDUCERS [Concomitant]
     Dosage: UNK, UNKNOWN
  14. AMITRIPTYLINE HYDROCHLORIDE [Concomitant]
  15. INDOMETHACIN [Concomitant]
  16. ATENOLOL [Concomitant]
  17. STARLIX [Concomitant]
     Dosage: UNK, 3/D
  18. AVANDAMET [Concomitant]
     Dosage: UNK, 2/D
  19. XANAX [Concomitant]
     Dosage: 1 MG, AS NEEDED
  20. AMLODIPINE W/BENAZEPRIL [Concomitant]
     Dosage: UNK, UNKNOWN
  21. LEXAPRO [Concomitant]
  22. FLONASE [Concomitant]
  23. LOSARTAN POTASSIUM [Concomitant]
  24. NORTRIPTYLINE /00006502/ [Concomitant]
  25. HYDROXYZINE [Concomitant]
     Dosage: UNK, UNKNOWN
  26. TRAMADOL HCL [Concomitant]
     Dosage: UNK, UNKNOWN
  27. TRICOR [Concomitant]
  28. LASIX [Concomitant]
  29. PERCOCET [Concomitant]
  30. IBUPROFEN [Concomitant]
     Dosage: UNK, UNKNOWN
  31. LISINOPRIL HYDROCHLORTHIAZID [Concomitant]
     Dosage: UNK, DAILY (1/D)
  32. SEROQUEL [Concomitant]
     Dosage: 25 MG, DAILY (1/D)
  33. LONOX [Concomitant]
     Dosage: UNK, UNKNOWN
  34. HYZAAR [Concomitant]
  35. PRAVACHOL [Concomitant]
  36. BYETTA [Suspect]
     Dosage: UNK, UNKNOWN
     Route: 065
  37. NAPROXEN [Concomitant]
     Dosage: 500 MG, AS NEEDED
  38. PIOGLITAZONE [Concomitant]
     Dosage: UNK, UNKNOWN
  39. OXYCODONE AND ACETAMINOPHEN [Concomitant]
     Dosage: UNK, UNKNOWN
  40. FLECTOR [Concomitant]
     Dosage: UNK, UNKNOWN
  41. RANITIDINE [Concomitant]
     Dosage: 300 MG, UNKNOWN
  42. NEURONTIN [Concomitant]
  43. HYDROCHLOROTHIAZIDE [Concomitant]
  44. EFFEXOR XR [Concomitant]

REACTIONS (9)
  - HEPATOSPLENOMEGALY [None]
  - PANCREATITIS [None]
  - NAUSEA [None]
  - POLYMYALGIA RHEUMATICA [None]
  - PLEURAL EFFUSION [None]
  - DIARRHOEA [None]
  - ABDOMINAL DISTENSION [None]
  - VOMITING [None]
  - HEPATIC STEATOSIS [None]
